FAERS Safety Report 13407460 (Version 1)
Quarter: 2017Q2

REPORT INFORMATION
  Report Type: Spontaneous
  Country: GB (occurrence: GB)
  Receive Date: 20170405
  Receipt Date: 20170405
  Transmission Date: 20170830
  Serious: Yes (Other)
  Sender: FDA-Public Use
  Company Number: GB-ASTRAZENECA-2017SE32543

PATIENT
  Age: 43 Year
  Sex: Female
  Weight: 85.7 kg

DRUGS (2)
  1. SYMBICORT [Suspect]
     Active Substance: BUDESONIDE\FORMOTEROL FUMARATE DIHYDRATE
     Indication: ASTHMA
     Dosage: 400/12
     Route: 055
     Dates: start: 20000315, end: 20170315
  2. DUORESP SPIROMAX [Suspect]
     Active Substance: BUDESONIDE\FORMOTEROL
     Indication: ASTHMA
     Route: 055
     Dates: start: 20170315, end: 20170317

REACTIONS (2)
  - Asthma [Recovering/Resolving]
  - Lactose intolerance [Unknown]

NARRATIVE: CASE EVENT DATE: 20170315
